FAERS Safety Report 21455976 (Version 2)
Quarter: 2022Q4

REPORT INFORMATION
  Report Type: Report from Study
  Country: US (occurrence: US)
  Receive Date: 20221014
  Receipt Date: 20221111
  Transmission Date: 20230113
  Serious: Yes (Other)
  Sender: FDA-Public Use
  Company Number: US-ABBVIE-22K-163-4509324-00

PATIENT
  Sex: Male

DRUGS (2)
  1. HUMIRA [Suspect]
     Active Substance: ADALIMUMAB
     Indication: Psoriasis
     Route: 058
  2. JANSSEN COVID-19 VACCINE [Concomitant]
     Active Substance: AD26.COV2.S
     Indication: COVID-19 immunisation
     Dosage: ONE IN ONCE
     Route: 030

REACTIONS (11)
  - Bone sequestrum [Not Recovered/Not Resolved]
  - Tooth extraction [Not Recovered/Not Resolved]
  - Insomnia [Unknown]
  - Herpes zoster [Recovering/Resolving]
  - COVID-19 [Recovered/Resolved]
  - Post procedural swelling [Not Recovered/Not Resolved]
  - Denture wearer [Unknown]
  - Weight decreased [Unknown]
  - Post procedural complication [Unknown]
  - Hypotension [Recovering/Resolving]
  - Muscle spasms [Recovering/Resolving]

NARRATIVE: CASE EVENT DATE: 20220101
